FAERS Safety Report 17273529 (Version 1)
Quarter: 2020Q1

REPORT INFORMATION
  Report Type: Spontaneous
  Country: US (occurrence: US)
  Receive Date: 20200115
  Receipt Date: 20200115
  Transmission Date: 20200409
  Serious: Yes (Hospitalization)
  Sender: FDA-Public Use
  Company Number: None

PATIENT
  Age: 53 Year

DRUGS (13)
  1. BENZONATATE. [Concomitant]
     Active Substance: BENZONATATE
  2. SHINGRIX [Concomitant]
     Active Substance: RECOMBINANT VARICELLA ZOSTER VIRUS (VZV) GLYCOPROTEIN E
  3. PRAZOSIN. [Concomitant]
     Active Substance: PRAZOSIN
  4. HUMIRA [Suspect]
     Active Substance: ADALIMUMAB
     Indication: PSORIASIS
     Dosage: ?          OTHER FREQUENCY:EVERY OTHER WEEK;?
     Route: 058
  5. HYDROXYZINE [Concomitant]
     Active Substance: HYDROXYZINE HYDROCHLORIDE
  6. LORAZEPAM. [Concomitant]
     Active Substance: LORAZEPAM
  7. TOPIRAMATE. [Concomitant]
     Active Substance: TOPIRAMATE
  8. ROSUVASTATIN. [Concomitant]
     Active Substance: ROSUVASTATIN
  9. DULOXETINE. [Concomitant]
     Active Substance: DULOXETINE
  10. ATENOLOL. [Concomitant]
     Active Substance: ATENOLOL
  11. PREDNISONE. [Concomitant]
     Active Substance: PREDNISONE
  12. LORATADINE. [Concomitant]
     Active Substance: LORATADINE
  13. DOXYCYCLINE. [Concomitant]
     Active Substance: DOXYCYCLINE

REACTIONS (1)
  - Pneumonia [None]

NARRATIVE: CASE EVENT DATE: 20200114
